FAERS Safety Report 4684416-4 (Version None)
Quarter: 2005Q2

REPORT INFORMATION
  Report Type: 
  Country: None (occurrence: None)
  Receive Date: 20050531
  Receipt Date: 20050117
  Transmission Date: 20051028
  Serious: Yes (Hospitalization)
  Sender: FDA-Public Use
  Company Number: USA040772507

PATIENT
  Age: 25 Year
  Sex: Male
  Weight: 84 kg

DRUGS (2)
  1. ZYPREXA [Suspect]
     Indication: SCHIZOPHRENIA
     Dosage: 20 MG/1 DAY
     Dates: start: 20000101
  2. PAXIL [Concomitant]

REACTIONS (16)
  - ANXIETY [None]
  - DEPRESSION [None]
  - DRUG EFFECT DECREASED [None]
  - DRY EYE [None]
  - DYSARTHRIA [None]
  - FATIGUE [None]
  - FEELING ABNORMAL [None]
  - IMPULSE-CONTROL DISORDER [None]
  - LETHARGY [None]
  - MENTAL IMPAIRMENT [None]
  - PANIC ATTACK [None]
  - PERSONALITY DISORDER [None]
  - SENSORY DISTURBANCE [None]
  - SOCIAL AVOIDANT BEHAVIOUR [None]
  - THINKING ABNORMAL [None]
  - WEIGHT DECREASED [None]
